FAERS Safety Report 9228655 (Version 1)
Quarter: 2013Q2

REPORT INFORMATION
  Report Type: Spontaneous
  Country: BR (occurrence: BR)
  Receive Date: 20130412
  Receipt Date: 20130412
  Transmission Date: 20140414
  Serious: Yes (Other)
  Sender: FDA-Public Use
  Company Number: BR-BRISTOL-MYERS SQUIBB COMPANY-18758672

PATIENT
  Age: 69 Year
  Sex: Female
  Weight: 58 kg

DRUGS (1)
  1. APROZIDE [Suspect]
     Indication: HYPERTENSION
     Dosage: 1DF:300/12.5MG , 1 TAB/DAY
     Dates: start: 2010

REACTIONS (1)
  - Glaucoma [Recovering/Resolving]
